FAERS Safety Report 13300970 (Version 1)
Quarter: 2017Q1

REPORT INFORMATION
  Report Type: Not Available
  Country: CH (occurrence: CH)
  Receive Date: 20170307
  Receipt Date: 20170307
  Transmission Date: 20170428
  Serious: Yes (Death)
  Sender: FDA-Public Use
  Company Number: CH--2017-CH-000001

PATIENT
  Age: 65 Year
  Sex: Female

DRUGS (15)
  1. METOCLOPRAMIDE. [Suspect]
     Active Substance: METOCLOPRAMIDE
  2. CITALOPRAM [Suspect]
     Active Substance: CITALOPRAM HYDROBROMIDE
  3. DEXTROMETORPHAN [Suspect]
     Active Substance: DEXTROMETHORPHAN
  4. NORDAZEPAM [Suspect]
     Active Substance: NORDAZEPAM
  5. FLUNITRAZEPAM [Suspect]
     Active Substance: FLUNITRAZEPAM
  6. ZOLPIDEM TARTRATE BRAND UNSPECIFIED (VIVIMED) [Suspect]
     Active Substance: ZOLPIDEM TARTRATE
     Indication: PRODUCT USED FOR UNKNOWN INDICATION
  7. DIAZEPAM. [Suspect]
     Active Substance: DIAZEPAM
     Indication: PRODUCT USED FOR UNKNOWN INDICATION
  8. BUTALBITAL [Suspect]
     Active Substance: BUTALBITAL
  9. PROPYPHENAZONE [Suspect]
     Active Substance: PROPYPHENAZONE
  10. TRAMADOL. [Suspect]
     Active Substance: TRAMADOL
  11. METAMIZOLE [Suspect]
     Active Substance: METAMIZOLE
  12. TRAZODONE [Suspect]
     Active Substance: TRAZODONE HYDROCHLORIDE
  13. BISOPROLOL [Suspect]
     Active Substance: BISOPROLOL
  14. LOPERAMIDE [Suspect]
     Active Substance: LOPERAMIDE
  15. PENTOBARBITAL. [Suspect]
     Active Substance: PENTOBARBITAL
     Indication: PRODUCT USED FOR UNKNOWN INDICATION
     Route: 033

REACTIONS (2)
  - Completed suicide [Fatal]
  - Overdose [Fatal]
